FAERS Safety Report 8720594 (Version 2)
Quarter: 2015Q2

REPORT INFORMATION
  Report Type: Report from Study
  Country: US (occurrence: US)
  Receive Date: 20120813
  Receipt Date: 20150625
  Transmission Date: 20150821
  Serious: Yes (Hospitalization)
  Sender: FDA-Public Use
  Company Number: US-ROCHE-1098976

PATIENT
  Sex: Male

DRUGS (2)
  1. ATROPINE [Concomitant]
     Active Substance: ATROPINE
     Route: 042
  2. ACTIVASE [Suspect]
     Active Substance: ALTEPLASE
     Indication: ACUTE MYOCARDIAL INFARCTION
     Route: 042

REACTIONS (2)
  - Chest pain [Unknown]
  - Pallor [Unknown]
